FAERS Safety Report 10064562 (Version 1)
Quarter: 2014Q2

REPORT INFORMATION
  Report Type: Spontaneous
  Country: US (occurrence: None)
  Receive Date: 20140407
  Receipt Date: 20140407
  Transmission Date: 20141212
  Serious: Yes (Disabling)
  Sender: FDA-Public Use
  Company Number: None

PATIENT
  Age: 43 Year
  Sex: Female
  Weight: 86.18 kg

DRUGS (1)
  1. BACTRIM DS 800-160 [Suspect]
     Indication: SALIVARY GLAND CALCULUS
     Route: 048
     Dates: start: 20140327, end: 20140403

REACTIONS (3)
  - Pruritus [None]
  - Urticaria [None]
  - Pyrexia [None]
